FAERS Safety Report 8458840-8 (Version None)
Quarter: 2012Q2

REPORT INFORMATION
  Report Type: 
  Country: None (occurrence: None)
  Receive Date: 20120622
  Receipt Date: 20120615
  Transmission Date: 20120825
  Serious: Yes (Other)
  Sender: FDA-Public Use
  Company Number: DE-PFIZER INC-2012145714

PATIENT
  Sex: Male

DRUGS (2)
  1. VENLAFAXINE HCL [Suspect]
     Dosage: 75 MG, 1X/DAY
     Route: 048
  2. VENLAFAXINE HCL [Suspect]
     Indication: PANIC ATTACK
     Dosage: 37.5 MG, 1X/DAY
     Route: 048
     Dates: start: 20120427

REACTIONS (1)
  - HAEMATOCHEZIA [None]
